FAERS Safety Report 20222542 (Version 3)
Quarter: 2022Q1

REPORT INFORMATION
  Report Type: Spontaneous
  Country: JP (occurrence: JP)
  Receive Date: 20211223
  Receipt Date: 20220124
  Transmission Date: 20220423
  Serious: Yes (Death)
  Sender: FDA-Public Use
  Company Number: JP-JNJFOC-20211240640

PATIENT
  Age: 19 Year
  Sex: Male
  Weight: 57.8 kg

DRUGS (35)
  1. OPSUMIT [Suspect]
     Active Substance: MACITENTAN
     Indication: Pulmonary arterial hypertension
     Route: 048
  2. UPTRAVI [Suspect]
     Active Substance: SELEXIPAG
     Indication: Pulmonary arterial hypertension
     Route: 048
     Dates: start: 20170911, end: 20180104
  3. UPTRAVI [Suspect]
     Active Substance: SELEXIPAG
     Indication: Pulmonary arterial hypertension
     Route: 048
     Dates: start: 20180105, end: 20180509
  4. UPTRAVI [Suspect]
     Active Substance: SELEXIPAG
     Indication: Pulmonary arterial hypertension
     Route: 048
     Dates: start: 20180510, end: 20180606
  5. UPTRAVI [Suspect]
     Active Substance: SELEXIPAG
     Indication: Pulmonary arterial hypertension
     Route: 048
     Dates: start: 20180607, end: 20180711
  6. UPTRAVI [Suspect]
     Active Substance: SELEXIPAG
     Indication: Pulmonary arterial hypertension
     Route: 048
     Dates: start: 20180712, end: 20180822
  7. UPTRAVI [Suspect]
     Active Substance: SELEXIPAG
     Indication: Pulmonary arterial hypertension
     Dosage: 0.6 MG IN THE MORNING AND 0.4 MG IN THE EVENING
     Route: 048
     Dates: start: 20180823, end: 20181128
  8. UPTRAVI [Suspect]
     Active Substance: SELEXIPAG
     Indication: Pulmonary arterial hypertension
     Route: 048
     Dates: start: 20181129, end: 20191120
  9. UPTRAVI [Suspect]
     Active Substance: SELEXIPAG
     Indication: Pulmonary arterial hypertension
     Route: 048
     Dates: start: 20191121, end: 20200624
  10. UPTRAVI [Suspect]
     Active Substance: SELEXIPAG
     Indication: Pulmonary arterial hypertension
     Route: 048
     Dates: start: 20200625, end: 20201118
  11. UPTRAVI [Suspect]
     Active Substance: SELEXIPAG
     Indication: Pulmonary arterial hypertension
     Dosage: 1.6MG IN THE MORNING AND 1.2MG IN THE EVENING
     Route: 048
     Dates: start: 20201119
  12. UPTRAVI [Suspect]
     Active Substance: SELEXIPAG
     Route: 048
  13. FAMOTIDINE [Suspect]
     Active Substance: FAMOTIDINE
     Indication: Prophylaxis
  14. ADCIRCA [Concomitant]
     Active Substance: TADALAFIL
     Indication: Pulmonary arterial hypertension
     Route: 048
  15. ADCIRCA [Concomitant]
     Active Substance: TADALAFIL
     Route: 048
  16. PREDONINE [Concomitant]
     Active Substance: PREDNISOLONE
     Indication: Protein-losing gastroenteropathy
     Dates: end: 20180510
  17. PREDONINE [Concomitant]
     Active Substance: PREDNISOLONE
     Dates: start: 20180511, end: 20190228
  18. PREDONINE [Concomitant]
     Active Substance: PREDNISOLONE
     Dates: end: 20190520
  19. PREDONINE [Concomitant]
     Active Substance: PREDNISOLONE
     Dates: start: 20190521, end: 20190523
  20. PREDONINE [Concomitant]
     Active Substance: PREDNISOLONE
     Dates: start: 20190524, end: 20190711
  21. PREDONINE [Concomitant]
     Active Substance: PREDNISOLONE
     Dates: start: 20190712, end: 20190801
  22. PREDONINE [Concomitant]
     Active Substance: PREDNISOLONE
     Dates: start: 20190802
  23. SAMSCA [Concomitant]
     Active Substance: TOLVAPTAN
  24. POTASSIUM ASPARTATE [Concomitant]
     Active Substance: POTASSIUM ASPARTATE
  25. EPLERENONE [Concomitant]
     Active Substance: EPLERENONE
  26. CARVEDILOL [Concomitant]
     Active Substance: CARVEDILOL
  27. WARFARIN [Concomitant]
     Active Substance: WARFARIN
  28. TORSEMIDE [Concomitant]
     Active Substance: TORSEMIDE
  29. TRICHLORMETHIAZIDE [Concomitant]
     Active Substance: TRICHLORMETHIAZIDE
  30. ISOSORBIDE DINITRATE [Concomitant]
     Active Substance: ISOSORBIDE DINITRATE
  31. REBAMIPIDE [Concomitant]
     Active Substance: REBAMIPIDE
     Indication: Prophylaxis
  32. LIVACT [ISOLEUCINE;LEUCINE;VALINE] [Concomitant]
     Indication: Protein-losing gastroenteropathy
  33. SODIUM FERROUS CITRATE [Concomitant]
     Active Substance: SODIUM FERROUS CITRATE
     Indication: Anaemia
  34. CANAGLIFLOZIN [Concomitant]
     Active Substance: CANAGLIFLOZIN
     Indication: Protein-losing gastroenteropathy
     Dates: start: 20171124
  35. TESTOSTERONE ENANTHATE [Concomitant]
     Active Substance: TESTOSTERONE ENANTHATE
     Indication: Short stature
     Dates: start: 20200528

REACTIONS (2)
  - Pulmonary arterial hypertension [Fatal]
  - Dysphagia [Unknown]

NARRATIVE: CASE EVENT DATE: 20211001
